FAERS Safety Report 14487603 (Version 1)
Quarter: 2018Q1

REPORT INFORMATION
  Report Type: Spontaneous
  Country: US (occurrence: US)
  Receive Date: 20180205
  Receipt Date: 20180205
  Transmission Date: 20180509
  Serious: No
  Sender: FDA-Public Use
  Company Number: US-BIOGEN-2018BI00518770

PATIENT
  Sex: Female

DRUGS (1)
  1. TECFIDERA [Suspect]
     Active Substance: DIMETHYL FUMARATE
     Indication: MULTIPLE SCLEROSIS
     Route: 065
     Dates: start: 20130731, end: 20180102

REACTIONS (4)
  - Ear discomfort [Recovered/Resolved]
  - Erythema [Unknown]
  - Gastrointestinal disorder [Recovered/Resolved]
  - Pruritus [Unknown]
